FAERS Safety Report 17465797 (Version 1)
Quarter: 2020Q1

REPORT INFORMATION
  Report Type: Report from Study
  Country: CO (occurrence: CO)
  Receive Date: 20200227
  Receipt Date: 20200227
  Transmission Date: 20200409
  Serious: Yes (Hospitalization)
  Sender: FDA-Public Use
  Company Number: CO-ROCHE-2434840

PATIENT
  Sex: Male

DRUGS (1)
  1. CELLCEPT [Suspect]
     Active Substance: MYCOPHENOLATE MOFETIL\MYCOPHENOLATE MOFETIL HYDROCHLORIDE
     Indication: TRANSPLANT
     Route: 048

REACTIONS (10)
  - Malaise [Unknown]
  - Anaemia [Unknown]
  - Tachycardia [Unknown]
  - Diarrhoea [Unknown]
  - Transplant rejection [Unknown]
  - Ulcer haemorrhage [Unknown]
  - Vomiting [Unknown]
  - Renal failure [Unknown]
  - Device related infection [Unknown]
  - Pyrexia [Unknown]
